FAERS Safety Report 4556773-0 (Version None)
Quarter: 2005Q1

REPORT INFORMATION
  Report Type: 
  Country: None (occurrence: None)
  Receive Date: 20050103
  Receipt Date: 20040721
  Transmission Date: 20050727
  Serious: Yes (Other)
  Sender: FDA-Public Use
  Company Number: 2004UW15318

PATIENT
  Age: 65 Year
  Sex: Male
  Weight: 117.9352 kg

DRUGS (6)
  1. CRESTOR [Suspect]
     Indication: HYPERCHOLESTEROLAEMIA
     Dosage: 10 MG QD PO   (DURATION: A FEW WEEKS)
     Route: 048
  2. ALLEGRA [Concomitant]
  3. ALTACE [Concomitant]
  4. MAG-OX [Concomitant]
  5. NEXIUM [Concomitant]
  6. COUMADIN [Concomitant]

REACTIONS (2)
  - ARTHRALGIA [None]
  - BURNING SENSATION [None]
